FAERS Safety Report 10271986 (Version 2)
Quarter: 2014Q3

REPORT INFORMATION
  Report Type: Spontaneous
  Country: FR (occurrence: FR)
  Receive Date: 20140702
  Receipt Date: 20140702
  Transmission Date: 20150326
  Serious: Yes (Hospitalization)
  Sender: FDA-Public Use
  Company Number: PHHY2011FR94982

PATIENT
  Age: 65 Year
  Sex: Female

DRUGS (2)
  1. VOLTARENE [Suspect]
     Active Substance: DICLOFENAC SODIUM
     Indication: PAIN
     Dosage: UNK UKN, UNK
     Route: 048
     Dates: end: 201110
  2. PARACETAMOL [Concomitant]
     Active Substance: ACETAMINOPHEN
     Route: 048
     Dates: start: 201109

REACTIONS (6)
  - Inflammation [Recovered/Resolved]
  - Pyrexia [Recovering/Resolving]
  - Bacteraemia [Recovered/Resolved]
  - Intervertebral discitis [Recovered/Resolved]
  - Spinal cord infection [Recovered/Resolved]
  - Pain in extremity [Recovered/Resolved]

NARRATIVE: CASE EVENT DATE: 201110
